FAERS Safety Report 10606808 (Version 1)
Quarter: 2014Q4

REPORT INFORMATION
  Report Type: Spontaneous
  Country: US (occurrence: None)
  Receive Date: 20141124
  Receipt Date: 20141124
  Transmission Date: 20150529
  Serious: Yes (Other)
  Sender: FDA-Public Use
  Company Number: None

PATIENT
  Age: 72 Year
  Sex: Female
  Weight: 89.81 kg

DRUGS (1)
  1. PROPRANOLOL [Suspect]
     Active Substance: PROPRANOLOL\PROPRANOLOL HYDROCHLORIDE
     Indication: BLOOD PRESSURE INCREASED
     Dosage: 1 PILL
     Route: 048
     Dates: start: 20141107, end: 20141119

REACTIONS (3)
  - Product substitution issue [None]
  - Product quality issue [None]
  - No therapeutic response [None]

NARRATIVE: CASE EVENT DATE: 20141119
